FAERS Safety Report 4826103-5 (Version None)
Quarter: 2005Q4

REPORT INFORMATION
  Report Type: 
  Country: None (occurrence: None)
  Receive Date: 20051014
  Receipt Date: 20050707
  Transmission Date: 20060501
  Serious: No
  Sender: FDA-Public Use
  Company Number: 2005SP001801

PATIENT
  Age: 79 Year
  Sex: Female
  Weight: 66.2252 kg

DRUGS (10)
  1. LUNESTA [Suspect]
     Indication: INSOMNIA
     Dosage: 2 MG; HS; ORAL
     Route: 048
     Dates: start: 20050628
  2. VITAMINS [Concomitant]
  3. CALCIUM GLUCONATE [Concomitant]
  4. PLENIDIL [Concomitant]
  5. ATENOL [Concomitant]
  6. ASPIRIN [Concomitant]
  7. RANITIDINE [Concomitant]
  8. RED RICE YEAST [Concomitant]
  9. GLUCOSAMINE [Concomitant]
  10. CENTRUM A TO ZINC [Concomitant]

REACTIONS (2)
  - DRUG INEFFECTIVE [None]
  - INSOMNIA [None]
